FAERS Safety Report 10544254 (Version 1)
Quarter: 2014Q4

REPORT INFORMATION
  Report Type: Spontaneous
  Country: JP (occurrence: None)
  Receive Date: 20141023
  Receipt Date: 20141023
  Transmission Date: 20150529
  Serious: Yes (Other)
  Sender: FDA-Public Use
  Company Number: COR_00107_2014

PATIENT
  Age: 67 Year
  Sex: Female

DRUGS (4)
  1. WARFARIN [Concomitant]
     Active Substance: WARFARIN
  2. CARBOPLATIN(CARBOPLATIN) [Suspect]
     Active Substance: CARBOPLATIN
     Indication: NEOPLASM MALIGNANT
     Dosage: AREA UNDER THE CURVE 2; DAYS 1, 8,15, 22, 29, AND 36), (AREA UNDER THE CURVE 5; DAY 1 EVERY 3 WEEKS)
  3. PACLITAXEL(PACLITAXEL) [Suspect]
     Active Substance: PACLITAXEL
     Indication: NEOPLASM MALIGNANT
     Dosage: 40 MG/M2 DAYS 1,8,15,22,29 AND 36, (175 MG/M2, (ON DAY 1 EVERY 3 WEEKS) 5 MONTHS UNTILL CONTINUING
  4. RADIATION THERAPY [Concomitant]
     Active Substance: RADIATION THERAPY

REACTIONS (4)
  - Oesophagitis [None]
  - Febrile neutropenia [None]
  - Tumour haemorrhage [None]
  - Thrombocytopenia [None]
